FAERS Safety Report 20762147 (Version 3)
Quarter: 2022Q2

REPORT INFORMATION
  Report Type: Spontaneous
  Country: US (occurrence: US)
  Receive Date: 20220428
  Receipt Date: 20220617
  Transmission Date: 20220721
  Serious: Yes (Hospitalization)
  Sender: FDA-Public Use
  Company Number: US-Global Blood Therapeutics Inc-US-GBT-22-02312

PATIENT
  Age: 68 Year
  Sex: Female

DRUGS (2)
  1. OXBRYTA [Suspect]
     Active Substance: VOXELOTOR
     Indication: Sickle cell disease
     Route: 048
     Dates: start: 202109
  2. EXCHANGE TRANSFUSION [Concomitant]
     Indication: Sickle cell disease
     Dosage: NOT PROVIDED

REACTIONS (17)
  - Acute chest syndrome [Unknown]
  - Encephalopathy [Unknown]
  - Sickle cell anaemia with crisis [Unknown]
  - Hypertensive emergency [Unknown]
  - Hepatic enzyme increased [Unknown]
  - Pneumonia [Unknown]
  - Status epilepticus [Unknown]
  - Malnutrition [Unknown]
  - Biliary dilatation [Unknown]
  - Hypoxia [Unknown]
  - Respiratory failure [Unknown]
  - Gait inability [Unknown]
  - Aphasia [Unknown]
  - Neuropathy peripheral [Not Recovered/Not Resolved]
  - Neuropathy peripheral [Not Recovered/Not Resolved]
  - Retrograde amnesia [Not Recovered/Not Resolved]
  - Ill-defined disorder [Unknown]

NARRATIVE: CASE EVENT DATE: 20220301
